FAERS Safety Report 10493504 (Version 3)
Quarter: 2016Q4

REPORT INFORMATION
  Report Type: Spontaneous
  Country: US (occurrence: US)
  Receive Date: 20141002
  Receipt Date: 20161220
  Transmission Date: 20170206
  Serious: No
  Sender: FDA-Public Use
  Company Number: US-GLAXOSMITHKLINE-A1084970A

PATIENT
  Age: 60 Year
  Sex: Female

DRUGS (5)
  1. ADVAIR DISKUS [Suspect]
     Active Substance: FLUTICASONE PROPIONATE\SALMETEROL XINAFOATE
     Indication: ASTHMA
     Route: 055
     Dates: start: 2007, end: 2007
  2. VALIUM [Concomitant]
     Active Substance: DIAZEPAM
  3. DILANTIN [Concomitant]
     Active Substance: PHENYTOIN
  4. KEPPRA [Concomitant]
     Active Substance: LEVETIRACETAM
  5. VENTOLIN HFA [Suspect]
     Active Substance: ALBUTEROL SULFATE
     Indication: PRODUCT USED FOR UNKNOWN INDICATION
     Dosage: 3 PUFF(S), PRN
     Route: 055

REACTIONS (7)
  - Product cleaning inadequate [Unknown]
  - Product quality issue [Unknown]
  - Off label use [Unknown]
  - Device use error [Unknown]
  - Dysgeusia [Recovered/Resolved]
  - Drug dose omission [Unknown]
  - Overdose [Unknown]

NARRATIVE: CASE EVENT DATE: 2007
